FAERS Safety Report 22249363 (Version 2)
Quarter: 2023Q2

REPORT INFORMATION
  Report Type: Spontaneous
  Country: US (occurrence: US)
  Receive Date: 20230425
  Receipt Date: 20230502
  Transmission Date: 20230721
  Serious: No
  Sender: FDA-Public Use
  Company Number: US-LUPIN PHARMACEUTICALS INC.-2023-02983

PATIENT

DRUGS (4)
  1. LEVALBUTEROL TARTRATE [Suspect]
     Active Substance: LEVALBUTEROL TARTRATE
     Indication: Asthma
     Dosage: UNK, INHALER 1 (EVERY 4-6 HOURS)
  2. LEVALBUTEROL TARTRATE [Suspect]
     Active Substance: LEVALBUTEROL TARTRATE
     Indication: Bronchitis
     Dosage: UNK, INHALER 2 (EVERY 4-6 HOURS)
  3. BUDESONIDE [Suspect]
     Active Substance: BUDESONIDE
     Indication: Asthma
     Dosage: UNK, BID (TWICE A DAY (MORNING AND NIGHT) AS NEEDED)
  4. ALBUTEROL SULFATE [Suspect]
     Active Substance: ALBUTEROL SULFATE
     Indication: Product used for unknown indication
     Dosage: UNK

REACTIONS (5)
  - Palpitations [Unknown]
  - Drug dose omission by device [Unknown]
  - Product use issue [Unknown]
  - Device delivery system issue [Unknown]
  - Product use in unapproved indication [Unknown]
